FAERS Safety Report 7827056-8 (Version None)
Quarter: 2011Q4

REPORT INFORMATION
  Report Type: 
  Country: None (occurrence: None)
  Receive Date: 20111020
  Receipt Date: 20111013
  Transmission Date: 20120403
  Serious: Yes (Death, Life-Threatening, Hospitalization, Other)
  Sender: FDA-Public Use
  Company Number: FR-ASTELLAS-2011EU006318

PATIENT
  Sex: Female
  Weight: 62 kg

DRUGS (1)
  1. MICAFUNGIN INJECTION [Suspect]
     Indication: SYSTEMIC CANDIDA
     Dosage: 100 MG, UNKNOWN/D
     Route: 042
     Dates: end: 20110601

REACTIONS (5)
  - RENAL FAILURE ACUTE [None]
  - ENCEPHALOPATHY [None]
  - CARDIO-RESPIRATORY ARREST [None]
  - HYPOVOLAEMIC SHOCK [None]
  - HYPOTENSION [None]
